FAERS Safety Report 18721949 (Version 1)
Quarter: 2021Q1

REPORT INFORMATION
  Report Type: Spontaneous
  Country: FR (occurrence: FR)
  Receive Date: 20210111
  Receipt Date: 20210111
  Transmission Date: 20210419
  Serious: Yes (Other)
  Sender: FDA-Public Use
  Company Number: FR-SUN PHARMACEUTICAL INDUSTRIES LTD-2020RR-274673

PATIENT
  Sex: Female

DRUGS (2)
  1. TEMOZOLOMIDE. [Suspect]
     Active Substance: TEMOZOLOMIDE
     Indication: PITUITARY TUMOUR
     Dosage: 250?270 MG/DAY, 5 DAYS EVERY 4 TO 5 WEEKS
     Route: 065
     Dates: start: 2009, end: 2010
  2. TEMOZOLOMIDE. [Suspect]
     Active Substance: TEMOZOLOMIDE
     Dosage: 250 MILLIGRAM, DAILY 5 DAYS EVERY 5 WEEKS
     Route: 065
     Dates: start: 2013

REACTIONS (2)
  - Thrombocytopenia [Unknown]
  - Disease progression [Unknown]
